FAERS Safety Report 12253968 (Version 1)
Quarter: 2016Q2

REPORT INFORMATION
  Report Type: Spontaneous
  Country: BR (occurrence: BR)
  Receive Date: 20160411
  Receipt Date: 20160411
  Transmission Date: 20160815
  Serious: Yes (Other)
  Sender: FDA-Public Use
  Company Number: BR-ELI_LILLY_AND_COMPANY-BR201603010732

PATIENT
  Sex: Male
  Weight: 80 kg

DRUGS (4)
  1. TADALAFILA [Suspect]
     Active Substance: TADALAFIL
     Indication: ERECTILE DYSFUNCTION
     Dosage: 20 MG, UNKNOWN
     Route: 048
     Dates: start: 2015
  2. CIALIS [Suspect]
     Active Substance: TADALAFIL
     Indication: ERECTILE DYSFUNCTION
     Dosage: 5 MG, QOD
     Route: 048
  3. TADALAFILA [Suspect]
     Active Substance: TADALAFIL
     Dosage: 5 MG, QOD
     Route: 048
  4. TORLOS [Concomitant]
     Dosage: UNK, UNKNOWN
     Route: 065

REACTIONS (4)
  - Intentional underdose [Unknown]
  - Blood pressure increased [Unknown]
  - Myalgia [Unknown]
  - Nausea [Unknown]
